FAERS Safety Report 18971939 (Version 1)
Quarter: 2021Q1

REPORT INFORMATION
  Report Type: Other
  Country: CA (occurrence: CA)
  Receive Date: 20210305
  Receipt Date: 20210305
  Transmission Date: 20210420
  Serious: Yes (Other)
  Sender: FDA-Public Use
  Company Number: CA-CELLTRION INC.-2021CA002638

PATIENT

DRUGS (6)
  1. TRASTUZUMAB (UNKNOWN) [Suspect]
     Active Substance: TRASTUZUMAB
     Indication: HER2 POSITIVE BREAST CANCER
     Route: 042
  2. PROCHLORPERAZINE. [Concomitant]
     Active Substance: PROCHLORPERAZINE
  3. KADCYLA [Suspect]
     Active Substance: ADO-TRASTUZUMAB EMTANSINE
     Indication: HER2 POSITIVE BREAST CANCER
     Dosage: 210 MG 1 EVERY 3 WEEKS
     Route: 042
  4. ANASTROZOLE. [Concomitant]
     Active Substance: ANASTROZOLE
  5. CARBOPLATIN. [Concomitant]
     Active Substance: CARBOPLATIN
     Indication: HER2 POSITIVE BREAST CANCER
  6. DOCETAXEL. [Concomitant]
     Active Substance: DOCETAXEL
     Indication: HER2 POSITIVE BREAST CANCER
     Route: 065

REACTIONS (1)
  - Retinal detachment [Unknown]
